FAERS Safety Report 18729112 (Version 1)
Quarter: 2021Q1

REPORT INFORMATION
  Report Type: Spontaneous
  Country: US (occurrence: US)
  Receive Date: 20210111
  Receipt Date: 20210111
  Transmission Date: 20210419
  Serious: No
  Sender: FDA-Public Use
  Company Number: None

PATIENT
  Age: 66 Year
  Sex: Female

DRUGS (9)
  1. LETAIRIS [Suspect]
     Active Substance: AMBRISENTAN
     Indication: PULMONARY ARTERIAL HYPERTENSION
     Route: 048
  2. VITAMIN D2 [Concomitant]
     Active Substance: ERGOCALCIFEROL
  3. ASPIRIN. [Concomitant]
     Active Substance: ASPIRIN
  4. SULFASALAZINE. [Concomitant]
     Active Substance: SULFASALAZINE
  5. FOLIC ACID. [Concomitant]
     Active Substance: FOLIC ACID
  6. TURMERIC [Concomitant]
     Active Substance: HERBALS\TURMERIC
  7. TORSEMIDE. [Concomitant]
     Active Substance: TORSEMIDE
  8. ATENOLOL. [Concomitant]
     Active Substance: ATENOLOL
  9. FERROUS SULFATE. [Concomitant]
     Active Substance: FERROUS SULFATE

REACTIONS (2)
  - Nasal congestion [None]
  - Dyspnoea [None]

NARRATIVE: CASE EVENT DATE: 20210111
